FAERS Safety Report 9369883 (Version 1)
Quarter: 2013Q2

REPORT INFORMATION
  Report Type: Spontaneous
  Country: US (occurrence: None)
  Receive Date: 20130625
  Receipt Date: 20130625
  Transmission Date: 20140414
  Serious: Yes (Hospitalization)
  Sender: FDA-Public Use
  Company Number: None

PATIENT
  Age: 66 Year
  Sex: Male
  Weight: 79.38 kg

DRUGS (1)
  1. XARALTO [Suspect]
     Indication: ANTICOAGULANT THERAPY
     Dosage: ONE 20 MG TAB ONLY ONE
     Route: 048
     Dates: start: 20130617, end: 20130617

REACTIONS (3)
  - Agitation [None]
  - Balance disorder [None]
  - Convulsion [None]
